FAERS Safety Report 10207907 (Version 1)
Quarter: 2014Q2

REPORT INFORMATION
  Report Type: Spontaneous
  Country: US (occurrence: US)
  Receive Date: 20140530
  Receipt Date: 20140530
  Transmission Date: 20141212
  Serious: Yes (Other)
  Sender: FDA-Public Use
  Company Number: US-PERRIGO-14US005514

PATIENT
  Age: 33 Year
  Sex: Male
  Weight: 102.4 kg

DRUGS (6)
  1. TESTOSTERONE CYPIONATE USP RX 200 MG/ML 6V3 [Suspect]
     Indication: BLOOD TESTOSTERONE DECREASED
     Dosage: 400 MG, SINGLE
     Route: 030
     Dates: start: 20140514, end: 20140514
  2. SINGULAIR [Concomitant]
     Indication: SEASONAL ALLERGY
     Dosage: UNK, UNK
     Route: 065
     Dates: start: 2013
  3. ASTHMA MEDICATION [Concomitant]
     Indication: ASTHMA
     Dosage: UNK, UNK
     Route: 065
     Dates: start: 2013
  4. LIPID MODIFYING AGENTS [Concomitant]
     Indication: BLOOD CHOLESTEROL INCREASED
     Dosage: UNK, UNK
     Route: 065
     Dates: start: 2013
  5. ANTIHYPERTENSIVES [Concomitant]
     Indication: HYPERTENSION
     Dosage: UNK, UNK
     Route: 065
     Dates: start: 2013
  6. DRUGS USED IN DIABETES [Concomitant]
     Indication: BLOOD GLUCOSE ABNORMAL
     Dosage: UNK
     Route: 065

REACTIONS (8)
  - Hypersensitivity [Recovered/Resolved]
  - Dyspnoea [Recovering/Resolving]
  - Chest discomfort [Recovered/Resolved]
  - Palpitations [Recovered/Resolved]
  - Blood pressure increased [Recovered/Resolved]
  - Dizziness [Recovered/Resolved]
  - Nausea [Recovered/Resolved]
  - Painful respiration [Recovering/Resolving]
